FAERS Safety Report 21119746 (Version 1)
Quarter: 2022Q3

REPORT INFORMATION
  Report Type: Spontaneous
  Country: US (occurrence: None)
  Receive Date: 20220721
  Receipt Date: 20220721
  Transmission Date: 20221027
  Serious: Yes (Death)
  Sender: FDA-Public Use
  Company Number: None

PATIENT
  Sex: Male

DRUGS (1)
  1. CAPECITABINE [Suspect]
     Active Substance: CAPECITABINE
     Indication: Colon cancer
     Dosage: TAKE 4 TABLETS (2,000 MG) BY MOUTH TWICE DAILY FOR 2 WEEKS ON, 1 WEEK OFF, THEN REPEAT
     Route: 048
     Dates: start: 20220630

REACTIONS (1)
  - Death [None]
